FAERS Safety Report 12113921 (Version 5)
Quarter: 2016Q1

REPORT INFORMATION
  Report Type: Report from Study
  Country: BR (occurrence: BR)
  Receive Date: 20160225
  Receipt Date: 20160329
  Transmission Date: 20160526
  Serious: Yes (Hospitalization)
  Sender: FDA-Public Use
  Company Number: PHHY2014BR162991

PATIENT
  Age: 45 Year
  Sex: Female
  Weight: 116 kg

DRUGS (3)
  1. SANDOSTATIN LAR DEPOT [Suspect]
     Active Substance: OCTREOTIDE ACETATE
     Indication: ACROMEGALY
     Dosage: 20 MG, EVERY 28 DAYS
     Route: 030
     Dates: start: 199903
  2. DDAVP//DESMOPRESSIN [Concomitant]
     Indication: DIABETES MELLITUS
     Dosage: 0.05 MG, TID
     Route: 045
     Dates: start: 199903
  3. SANDOSTATIN LAR DEPOT [Suspect]
     Active Substance: OCTREOTIDE ACETATE
     Dosage: 30 MG, QMO
     Route: 030
     Dates: start: 201504

REACTIONS (8)
  - Malaise [Unknown]
  - Adrenal disorder [Unknown]
  - Product quality issue [Unknown]
  - Dengue fever [Unknown]
  - Underdose [Unknown]
  - Immunodeficiency [Unknown]
  - Pain [Unknown]
  - Wrong technique in product usage process [Unknown]

NARRATIVE: CASE EVENT DATE: 2014
